FAERS Safety Report 19805515 (Version 1)
Quarter: 2021Q3

REPORT INFORMATION
  Report Type: Spontaneous
  Country: US (occurrence: US)
  Receive Date: 20210908
  Receipt Date: 20210908
  Transmission Date: 20211014
  Serious: Yes (Other)
  Sender: FDA-Public Use
  Company Number: US-FRESENIUS KABI-FK202109600

PATIENT
  Age: 68 Year
  Sex: Female

DRUGS (2)
  1. IDARUBICIN [Suspect]
     Active Substance: IDARUBICIN
     Indication: ACUTE MYELOID LEUKAEMIA
     Dosage: (7+3)
     Route: 065
  2. CYTARABINE (MANUFACTURER UNKNOWN) [Suspect]
     Active Substance: CYTARABINE
     Indication: ACUTE MYELOID LEUKAEMIA
     Dosage: (7+3)
     Route: 065

REACTIONS (7)
  - Febrile neutropenia [Unknown]
  - Mucosal inflammation [Unknown]
  - Renal failure [Unknown]
  - Pneumonia [Unknown]
  - Hypoglycaemia [Unknown]
  - Vaginal haemorrhage [Unknown]
  - Hyperbilirubinaemia [Unknown]
